FAERS Safety Report 25300610 (Version 1)
Quarter: 2025Q2

REPORT INFORMATION
  Report Type: Spontaneous
  Country: US (occurrence: None)
  Receive Date: 20250509
  Receipt Date: 20250509
  Transmission Date: 20250717
  Serious: No
  Sender: FDA-CTU
  Company Number: None

PATIENT

DRUGS (1)
  1. DRONABINOL [Suspect]
     Active Substance: DRONABINOL

REACTIONS (4)
  - Product prescribing issue [None]
  - Product dose omission in error [None]
  - Weight decreased [None]
  - Product use issue [None]

NARRATIVE: CASE EVENT DATE: 20250508
